FAERS Safety Report 17502400 (Version 7)
Quarter: 2022Q1

REPORT INFORMATION
  Report Type: Other
  Country: US (occurrence: None)
  Receive Date: 20200305
  Receipt Date: 20220314
  Transmission Date: 20220423
  Serious: Yes (Other)
  Sender: FDA-Public Use
  Company Number: US-ROCHE-2323826

PATIENT
  Sex: Female
  Weight: 78.088 kg

DRUGS (29)
  1. OCREVUS [Suspect]
     Active Substance: OCRELIZUMAB
     Indication: Secondary progressive multiple sclerosis
     Dosage: 300 MG DAY 1 AND DAY 15THAN 600 MG EVERY 6MONTHS?DATE OF TREATMENT: ,11-SEP-2018,18-MAY-2020,25-MAR-
     Route: 042
     Dates: start: 20180824
  2. OCREVUS [Suspect]
     Active Substance: OCRELIZUMAB
     Indication: Relapsing multiple sclerosis
     Route: 042
     Dates: start: 20180911
  3. OCREVUS [Suspect]
     Active Substance: OCRELIZUMAB
     Dosage: 11/MAR/2019: FIRST FULL DOSE
     Route: 042
     Dates: start: 2018
  4. OCREVUS [Suspect]
     Active Substance: OCRELIZUMAB
     Dosage: 1 IN 5 MONTHS
     Route: 042
     Dates: start: 2019
  5. AMPYRA [Concomitant]
     Active Substance: DALFAMPRIDINE
  6. GABAPENTIN [Concomitant]
     Active Substance: GABAPENTIN
     Indication: Neuralgia
     Route: 048
     Dates: start: 20210330
  7. GABAPENTIN [Concomitant]
     Active Substance: GABAPENTIN
     Dates: start: 2001, end: 20210330
  8. VENLAFAXINE [Concomitant]
     Active Substance: VENLAFAXINE HYDROCHLORIDE
     Indication: Depression
     Dosage: DOSE 225; ONGOING YES
     Route: 048
     Dates: start: 2001, end: 20210330
  9. VENLAFAXINE [Concomitant]
     Active Substance: VENLAFAXINE HYDROCHLORIDE
     Indication: Neuritis
     Dates: start: 20210330
  10. VENLAFAXINE [Concomitant]
     Active Substance: VENLAFAXINE HYDROCHLORIDE
     Indication: Neuralgia
  11. REQUIP [Concomitant]
     Active Substance: ROPINIROLE HYDROCHLORIDE
     Indication: Restless legs syndrome
     Dosage: ONGOING YES
     Route: 048
  12. FOSAMAX [Concomitant]
     Active Substance: ALENDRONATE SODIUM
     Indication: Spinal stenosis
     Dosage: ONGOING: YES
     Route: 048
  13. DALFAMPRIDINE [Concomitant]
     Active Substance: DALFAMPRIDINE
     Indication: Gait disturbance
     Dosage: ONGOING: YES
     Route: 048
  14. NAPROXEN [Concomitant]
     Active Substance: NAPROXEN
     Indication: Myalgia
     Dosage: ONGOING:YES
     Route: 048
  15. NAPROXEN [Concomitant]
     Active Substance: NAPROXEN
     Indication: Headache
  16. MORPHINE [Concomitant]
     Active Substance: MORPHINE
     Dosage: 25 MG/ML INJECTION SOLUTION
  17. NEURONTIN [Concomitant]
     Active Substance: GABAPENTIN
  18. NEURONTIN [Concomitant]
     Active Substance: GABAPENTIN
  19. NORCO [Concomitant]
     Active Substance: ACETAMINOPHEN\HYDROCODONE BITARTRATE
     Dosage: 7.5 MG -325 MG
  20. PREDNISOLONE [Concomitant]
     Active Substance: PREDNISOLONE
  21. BACLOFEN [Concomitant]
     Active Substance: BACLOFEN
  22. BACLOFEN [Concomitant]
     Active Substance: BACLOFEN
     Dates: start: 2005
  23. MEDROL [Concomitant]
     Active Substance: METHYLPREDNISOLONE
  24. BACTRIM DS [Concomitant]
     Active Substance: SULFAMETHOXAZOLE\TRIMETHOPRIM
     Dosage: 800 MG TO 160 MG
  25. FENTANYL [Concomitant]
     Active Substance: FENTANYL
     Dosage: 25 MCG /HR
  26. OMEPRAZOLE [Concomitant]
     Active Substance: OMEPRAZOLE
     Indication: Hiatus hernia
     Dates: start: 2018
  27. TUMS [Concomitant]
     Active Substance: CALCIUM CARBONATE
  28. ROPINIROLE [Concomitant]
     Active Substance: ROPINIROLE
     Dates: start: 2019
  29. COENZYME Q10 [Concomitant]
     Active Substance: DIETARY SUPPLEMENT\UBIDECARENONE
     Dosage: TAKES OCCASIONAL A COUPLE TIMES A DAY WHILE EATING
     Dates: start: 2001

REACTIONS (49)
  - Multiple sclerosis relapse [Recovered/Resolved]
  - Off label use [Unknown]
  - Fall [Unknown]
  - Upper limb fracture [Recovered/Resolved]
  - Hand fracture [Recovered/Resolved]
  - Postoperative wound infection [Unknown]
  - Multiple sclerosis relapse [Not Recovered/Not Resolved]
  - Body height decreased [Unknown]
  - Weight increased [Unknown]
  - Complex regional pain syndrome [Unknown]
  - Back pain [Unknown]
  - Pain [Unknown]
  - Hyperglycaemia [Unknown]
  - Intervertebral disc degeneration [Unknown]
  - Neck pain [Unknown]
  - Pain in extremity [Unknown]
  - Chest discomfort [Unknown]
  - Mental status changes [Unknown]
  - Urinary retention [Unknown]
  - Carpal tunnel syndrome [Unknown]
  - Paraesthesia [Unknown]
  - Ataxia [Unknown]
  - Migraine without aura [Unknown]
  - Affective disorder [Unknown]
  - Tremor [Unknown]
  - Optic neuritis [Unknown]
  - Seizure [Unknown]
  - Herpes virus infection [Unknown]
  - Vestibular disorder [Unknown]
  - Deafness unilateral [Unknown]
  - Staphylococcal infection [Unknown]
  - Somnolence [Not Recovered/Not Resolved]
  - Nausea [Recovered/Resolved]
  - Headache [Recovered/Resolved]
  - Peripheral swelling [Unknown]
  - Somnambulism [Not Recovered/Not Resolved]
  - Muscle spasms [Unknown]
  - Dyspnoea [Unknown]
  - Thoracic vertebral fracture [Unknown]
  - Ocular vascular disorder [Not Recovered/Not Resolved]
  - Eye disorder [Not Recovered/Not Resolved]
  - Tinnitus [Not Recovered/Not Resolved]
  - Confusional state [Not Recovered/Not Resolved]
  - Visual impairment [Not Recovered/Not Resolved]
  - Gastrooesophageal reflux disease [Not Recovered/Not Resolved]
  - Throat irritation [Not Recovered/Not Resolved]
  - Abdominal pain upper [Not Recovered/Not Resolved]
  - Product dose omission in error [Unknown]
  - Thyroid disorder [Not Recovered/Not Resolved]

NARRATIVE: CASE EVENT DATE: 20190101
